FAERS Safety Report 9386019 (Version 2)
Quarter: 2013Q3

REPORT INFORMATION
  Report Type: Spontaneous
  Country: US (occurrence: US)
  Receive Date: 20130705
  Receipt Date: 20130829
  Transmission Date: 20140515
  Serious: Yes (Hospitalization, Other)
  Sender: FDA-Public Use
  Company Number: US-ABBOTT-13P-163-1114753-00

PATIENT
  Age: 36 Year
  Sex: Female
  Weight: 77.18 kg

DRUGS (7)
  1. HUMIRA [Suspect]
     Indication: COLITIS ULCERATIVE
     Dates: start: 2010, end: 201105
  2. HUMIRA [Suspect]
     Dates: start: 201208, end: 201305
  3. LIALDA [Concomitant]
     Indication: PRODUCT USED FOR UNKNOWN INDICATION
  4. MELOXICAM [Concomitant]
     Indication: PAIN
  5. RANITIDINE [Concomitant]
     Indication: GASTROOESOPHAGEAL REFLUX DISEASE
  6. TRAMADOL [Concomitant]
     Indication: PAIN
  7. MULTIVITAMIN [Concomitant]
     Indication: PRODUCT USED FOR UNKNOWN INDICATION

REACTIONS (5)
  - Abortion spontaneous [Unknown]
  - Arthralgia [Recovered/Resolved]
  - Rhabdomyolysis [Recovered/Resolved]
  - Colitis ulcerative [Unknown]
  - Stress [Unknown]
